FAERS Safety Report 5194630-X (Version None)
Quarter: 2006Q4

REPORT INFORMATION
  Report Type: 
  Country: None (occurrence: None)
  Receive Date: 20061221
  Receipt Date: 20061221
  Transmission Date: 20070319
  Serious: No
  Sender: FDA-Public Use
  Company Number: None

PATIENT
  Sex: Male
  Weight: 64.4108 kg

DRUGS (3)
  1. ISONIAZID, 300 MG (BARR) MANUFACTURER [Suspect]
     Indication: TUBERCULOSIS
     Dosage: 300MG  QD  PO
     Route: 048
     Dates: start: 20061016, end: 20061115
  2. ISONIAZID, 300 MG (BARR) MANUFACTURER [Suspect]
     Indication: TUBERCULOSIS
     Dosage: 300MG  QD  PO
     Route: 048
     Dates: start: 20061115, end: 20061215
  3. ISONIAZID [Suspect]

REACTIONS (1)
  - HEPATITIS [None]
